FAERS Safety Report 8350948-0 (Version None)
Quarter: 2012Q2

REPORT INFORMATION
  Report Type: 
  Country: None (occurrence: None)
  Receive Date: 20120510
  Receipt Date: 20120427
  Transmission Date: 20120825
  Serious: No
  Sender: FDA-Public Use
  Company Number: JP-ELI_LILLY_AND_COMPANY-JP201202006586

PATIENT
  Age: 62 Year
  Sex: Male

DRUGS (4)
  1. ZYPREXA [Suspect]
     Dosage: 2.5 MG, QD
     Route: 048
  2. LENDORMIN [Concomitant]
     Dosage: UNK
     Route: 048
  3. POSTERISAN FORTE [Concomitant]
     Indication: ANAL INFLAMMATION
     Dosage: UNK
     Route: 062
  4. MAGNESIUM OXIDE [Concomitant]
     Indication: CONSTIPATION

REACTIONS (3)
  - NASAL DRYNESS [None]
  - EPISTAXIS [None]
  - SCAB [None]
